FAERS Safety Report 14737750 (Version 2)
Quarter: 2018Q2

REPORT INFORMATION
  Report Type: Spontaneous
  Country: DE (occurrence: UA)
  Receive Date: 20180409
  Receipt Date: 20180426
  Transmission Date: 20180711
  Serious: Yes (Other)
  Sender: FDA-Public Use
  Company Number: DE-B.I. PHARMACEUTICALS,INC./RIDGEFIELD-2018-BI-018928

PATIENT
  Age: 72 Year
  Sex: Female
  Weight: 77 kg

DRUGS (2)
  1. GILOTRIF [Suspect]
     Active Substance: AFATINIB
     Indication: PRODUCT USED FOR UNKNOWN INDICATION
     Route: 048
     Dates: start: 201611, end: 201804
  2. EUTIROKS [Concomitant]
     Indication: PRODUCT USED FOR UNKNOWN INDICATION
     Route: 048
     Dates: start: 2010

REACTIONS (3)
  - Drug effect decreased [Recovered/Resolved with Sequelae]
  - Product quality issue [Unknown]
  - Lymphadenopathy mediastinal [Recovered/Resolved with Sequelae]

NARRATIVE: CASE EVENT DATE: 201802
